FAERS Safety Report 8906248 (Version 2)
Quarter: 2012Q4

REPORT INFORMATION
  Report Type: Spontaneous
  Country: US (occurrence: None)
  Receive Date: 20120823
  Receipt Date: 20120907
  Transmission Date: 20130627
  Serious: Yes (Hospitalization)
  Sender: FDA-Public Use
  Company Number: AUR-APL-2012-03561

PATIENT
  Age: 27 Year
  Sex: Male

DRUGS (4)
  1. OLANZAPINE [Suspect]
     Indication: DRUG USE FOR UNKNOWN INDICATION
  2. OLANZAPINE [Suspect]
  3. BENZATROPINE [Suspect]
     Indication: DRUG USE FOR UNKNOWN INDICATION
  4. BUPROPION (BUPROPION) [Concomitant]
     Indication: DRUG USE FOR UNKNOWN INDICATION

REACTIONS (5)
  - Colitis ischaemic [None]
  - Haematochezia [None]
  - Pyrexia [None]
  - Intestinal obstruction [None]
  - Constipation [None]
